FAERS Safety Report 12334566 (Version 1)
Quarter: 2016Q2

REPORT INFORMATION
  Report Type: Spontaneous
  Country: US (occurrence: US)
  Receive Date: 20160504
  Receipt Date: 20160504
  Transmission Date: 20160815
  Serious: No
  Sender: FDA-Public Use
  Company Number: US-LNK INTERNATIONAL, INC.-1051423

PATIENT
  Age: 57 Year
  Sex: Female

DRUGS (1)
  1. NIGHTTIME SLEEP AID (DOXYLAMINE SUCCINATE) [Suspect]
     Active Substance: DOXYLAMINE SUCCINATE
     Indication: INITIAL INSOMNIA

REACTIONS (4)
  - Middle insomnia [None]
  - Feeling drunk [None]
  - Pollakiuria [None]
  - Initial insomnia [None]
